FAERS Safety Report 18315640 (Version 1)
Quarter: 2020Q3

REPORT INFORMATION
  Report Type: Spontaneous
  Country: ES (occurrence: ES)
  Receive Date: 20200926
  Receipt Date: 20200926
  Transmission Date: 20201103
  Serious: Yes (Other)
  Sender: FDA-Public Use
  Company Number: NVSC2020ES258849

PATIENT
  Age: 68 Year
  Sex: Female

DRUGS (6)
  1. NAPRILENE [Concomitant]
     Active Substance: ENALAPRIL MALEATE
     Indication: PRODUCT USED FOR UNKNOWN INDICATION
     Dosage: 20 MG, QD (30 COMPRIMIDOS)
     Route: 048
     Dates: start: 20200803
  2. PARIET [Concomitant]
     Active Substance: RABEPRAZOLE SODIUM
     Indication: PRODUCT USED FOR UNKNOWN INDICATION
     Dosage: 20 MG, Q12H (28 COMPRIMIDOS)
     Route: 048
     Dates: start: 20120216
  3. COLPOTROFIN [Concomitant]
     Indication: PRODUCT USED FOR UNKNOWN INDICATION
     Dosage: UNK, 1 TUBO DE 30 G, 10 MG/G
     Route: 067
     Dates: start: 20120120
  4. VISCOFRESH [Concomitant]
     Indication: PRODUCT USED FOR UNKNOWN INDICATION
     Dosage: 0.4 ML, QD
     Route: 047
     Dates: start: 20120301
  5. TEGRETOL [Suspect]
     Active Substance: CARBAMAZEPINE
     Indication: HEADACHE
     Dosage: 200 MG, Q12H
     Route: 048
     Dates: start: 20200811, end: 20200908
  6. LEXATIN [Concomitant]
     Indication: PRODUCT USED FOR UNKNOWN INDICATION
     Dosage: 1.5 MG, Q12H (30 CAPSULAS)
     Route: 048
     Dates: start: 20120215

REACTIONS (1)
  - Balance disorder [Recovered/Resolved]

NARRATIVE: CASE EVENT DATE: 20200906
